FAERS Safety Report 9052159 (Version 1)
Quarter: 2013Q1

REPORT INFORMATION
  Report Type: Spontaneous
  Country: US (occurrence: US)
  Receive Date: 20130206
  Receipt Date: 20130206
  Transmission Date: 20140127
  Serious: No
  Sender: FDA-Public Use
  Company Number: US-BIOGENIDEC-2013BI009317

PATIENT
  Age: 35 Year
  Sex: Female

DRUGS (3)
  1. TYSABRI [Suspect]
     Indication: MULTIPLE SCLEROSIS
     Route: 042
     Dates: start: 20100616, end: 201209
  2. TYSABRI [Suspect]
     Indication: MULTIPLE SCLEROSIS
     Route: 042
     Dates: start: 201211
  3. ARICEPT [Concomitant]
     Indication: COGNITIVE DISORDER
     Route: 048
     Dates: start: 201201

REACTIONS (5)
  - Memory impairment [Not Recovered/Not Resolved]
  - Dysphemia [Not Recovered/Not Resolved]
  - Inappropriate schedule of drug administration [Unknown]
  - Cognitive disorder [Not Recovered/Not Resolved]
  - Influenza [Recovered/Resolved]
